FAERS Safety Report 14378133 (Version 1)
Quarter: 2018Q1

REPORT INFORMATION
  Report Type: Spontaneous
  Country: PL (occurrence: PL)
  Receive Date: 20180111
  Receipt Date: 20180111
  Transmission Date: 20180509
  Serious: Yes (Hospitalization)
  Sender: FDA-Public Use
  Company Number: PL-ALLERGAN-1801388US

PATIENT
  Age: 34 Year
  Sex: Female

DRUGS (1)
  1. URSODEOXYCHOLIC ACID UNK [Suspect]
     Active Substance: URSODIOL
     Indication: HEPATITIS CHOLESTATIC
     Dosage: 250 MG, TID
     Route: 065

REACTIONS (1)
  - Cholangitis sclerosing [Unknown]
